FAERS Safety Report 5254672-2 (Version None)
Quarter: 2007Q1

REPORT INFORMATION
  Report Type: 
  Country: None (occurrence: None)
  Receive Date: 20061201
  Receipt Date: 20060905
  Transmission Date: 20070707
  Serious: No
  Sender: FDA-Public Use
  Company Number: 2006PV020714

PATIENT
  Age: 38 Year
  Sex: Female
  Weight: 83.9154 kg

DRUGS (6)
  1. BYETTA [Suspect]
     Indication: DIABETES MELLITUS
     Dosage: SEE IMAGE
     Route: 058
     Dates: start: 20060728, end: 20060101
  2. BYETTA [Suspect]
     Indication: DIABETES MELLITUS
     Dosage: SEE IMAGE
     Route: 058
     Dates: start: 20060101
  3. FORTAMET [Concomitant]
  4. VITAMIN B-12 [Concomitant]
  5. CLARITIN [Concomitant]
  6. SEASONALE [Concomitant]

REACTIONS (6)
  - ENERGY INCREASED [None]
  - INJECTION SITE URTICARIA [None]
  - PRE-EXISTING CONDITION IMPROVED [None]
  - THERAPEUTIC RESPONSE UNEXPECTED [None]
  - URTICARIA [None]
  - WEIGHT DECREASED [None]
